FAERS Safety Report 5119861-6 (Version None)
Quarter: 2006Q4

REPORT INFORMATION
  Report Type: 
  Country: None (occurrence: None)
  Receive Date: 20061003
  Receipt Date: 20060919
  Transmission Date: 20070319
  Serious: Yes (Disabling)
  Sender: FDA-Public Use
  Company Number: CA-BOEHRINGER INGELHEIM PHARMACEUTICALS, INC.-2006-CN-00491CN

PATIENT
  Sex: Male

DRUGS (1)
  1. TIPRANAVIR + RITONAVIR CO-ADMIN [Suspect]

REACTIONS (3)
  - NECROTISING RETINITIS [None]
  - RETINAL DETACHMENT [None]
  - RETINITIS VIRAL [None]
